FAERS Safety Report 18819339 (Version 3)
Quarter: 2021Q3

REPORT INFORMATION
  Report Type: Report from Study
  Country: US (occurrence: US)
  Receive Date: 20210201
  Receipt Date: 20210819
  Transmission Date: 20211014
  Serious: No
  Sender: FDA-Public Use
  Company Number: NVSC2021US015899

PATIENT
  Sex: Male

DRUGS (1)
  1. ADAKVEO [Suspect]
     Active Substance: CRIZANLIZUMAB-TMCA
     Indication: SICKLE CELL DISEASE
     Dosage: ONCE A MONTH
     Route: 042
     Dates: start: 20200227

REACTIONS (3)
  - Pharyngitis streptococcal [Unknown]
  - Anxiety [Unknown]
  - Stress [Unknown]
